FAERS Safety Report 9643943 (Version 1)
Quarter: 2013Q4

REPORT INFORMATION
  Report Type: Spontaneous
  Country: AU (occurrence: None)
  Receive Date: 20131023
  Receipt Date: 20131023
  Transmission Date: 20140711
  Serious: Yes (Other)
  Sender: FDA-Public Use
  Company Number: ENTC2013-0372

PATIENT
  Sex: Male

DRUGS (4)
  1. STALEVO (LEVODA, CARBIDOPA, ENTACAPONE) [Suspect]
  2. BLACKMORES FISH OIL [Concomitant]
  3. CHLORELLA VULGARIS [Concomitant]
  4. ALPRAZOLAM [Concomitant]

REACTIONS (7)
  - Anxiety [None]
  - Delusion [None]
  - Disturbance in attention [None]
  - Dyspnoea [None]
  - Panic attack [None]
  - Suicidal ideation [None]
  - Thinking abnormal [None]
